FAERS Safety Report 22010695 (Version 1)
Quarter: 2023Q1

REPORT INFORMATION
  Report Type: Spontaneous
  Country: US (occurrence: US)
  Receive Date: 20230220
  Receipt Date: 20230220
  Transmission Date: 20230418
  Serious: Yes (Hospitalization, Other)
  Sender: FDA-Public Use
  Company Number: US-BIOVITRUM-2023US02465

PATIENT
  Sex: Male
  Weight: 5 kg

DRUGS (5)
  1. SYNAGIS [Suspect]
     Active Substance: PALIVIZUMAB
     Indication: Premature baby
     Dosage: 100 MG SDV/INJ PF 1 ML 1^S
     Dates: start: 202211
  2. EPINEPHRINE [Concomitant]
     Active Substance: EPINEPHRINE
  3. SYNAGIS [Suspect]
     Active Substance: PALIVIZUMAB
     Indication: Antiviral prophylaxis
  4. SYNAGIS [Suspect]
     Active Substance: PALIVIZUMAB
     Indication: Illness
  5. MULTIVITAMIN-IRON-FLUORIDE [Concomitant]

REACTIONS (1)
  - Cellulitis [Unknown]
